FAERS Safety Report 6822183-6 (Version None)
Quarter: 2010Q3

REPORT INFORMATION
  Report Type: 
  Country: None (occurrence: None)
  Receive Date: 20100708
  Receipt Date: 20100629
  Transmission Date: 20110219
  Serious: Yes (Hospitalization, Disabling)
  Sender: FDA-Public Use
  Company Number: JP-SOLVAY-00310002323

PATIENT
  Age: 44 Year
  Sex: Male
  Weight: 52 kg

DRUGS (10)
  1. VEEN-D [Concomitant]
     Indication: VOMITING
     Dosage: DAILY DOSE: 500 MILLILITRE(S), AS USED: 500 ML, FREQUENCY: ONCE, ROUTE: DR
     Route: 050
     Dates: start: 20091030, end: 20091030
  2. NAUZELIN [Concomitant]
     Indication: VOMITING
     Dosage: DAILY DOSE: 20 MILLIGRAM(S)
     Route: 048
     Dates: start: 20091030, end: 20091030
  3. INNOLET 30R [Concomitant]
     Indication: DIABETES MELLITUS
     Dosage: DAILY DOSE: 10-16 IU, AS USED: 6-10 IU, FREQUENCY: TWICE A DAY
     Route: 058
     Dates: start: 20090612
  4. BASEN OD [Concomitant]
     Indication: DIABETES MELLITUS
     Dosage: DAILY DOSE: .6 MILLIGRAM(S)
     Route: 048
     Dates: start: 20090612
  5. PARIET [Concomitant]
     Indication: REFLUX OESOPHAGITIS
     Dosage: DAILY DOSE: 10 MILLIGRAM(S)
     Route: 048
     Dates: start: 20090612
  6. FOIPAN [Concomitant]
     Indication: ILL-DEFINED DISORDER
     Dosage: DAILY DOSE: 600 MILLIGRAM(S)
     Route: 048
     Dates: start: 20090612
  7. CREON [Suspect]
     Indication: PANCREATIC INSUFFICIENCY
     Dosage: DAILY DOSE:4-12 CAP,AS USED:4 CAP,FREQ:2OR3 TIMES A DAY;COULD NOT BE TAKEN ON 12 APR 2010(MORN,AFT)
     Route: 048
     Dates: start: 20090613, end: 20100524
  8. CRAVIT [Concomitant]
     Indication: PHARYNGITIS
     Dosage: DAILY DOSE: 300 MILLIGRAM(S)
     Route: 048
     Dates: start: 20091225, end: 20091228
  9. HUMULIN R [Concomitant]
     Indication: BLOOD GLUCOSE INCREASED
     Dosage: DAILY DOSE: 2 INTERNATIONAL UNIT(S), AS USED: 2 IU, FREQUENCY: ONCE
     Route: 058
     Dates: start: 20091030, end: 20091030
  10. PRIMPERAN TAB [Concomitant]
     Indication: VOMITING
     Dosage: DAILY DOSE: 10 MILLIGRAM(S), AS USED: 10 MG, FREQUENCY: ONCE
     Route: 042
     Dates: start: 20091030, end: 20091030

REACTIONS (5)
  - EPILEPSY [None]
  - HYPOGLYCAEMIA [None]
  - LACUNAR INFARCTION [None]
  - MALAISE [None]
  - POST-TRAUMATIC PAIN [None]
